FAERS Safety Report 9233528 (Version 2)
Quarter: 2014Q1

REPORT INFORMATION
  Report Type: Spontaneous
  Country: US (occurrence: US)
  Receive Date: 20130416
  Receipt Date: 20140328
  Transmission Date: 20141002
  Serious: Yes (Death)
  Sender: FDA-Public Use
  Company Number: US-LUNDBECK-DKLU1090127

PATIENT
  Sex: Female

DRUGS (6)
  1. SABRIL (FOR ORAL SOLUTION) [Suspect]
     Indication: INFANTILE SPASMS
     Route: 048
  2. SABRIL (FOR ORAL SOLUTION) [Suspect]
     Dosage: TITRATED DOSE DAILY UNTIL AT GOAL DOSE OF 200 MG BID
     Route: 048
     Dates: start: 20130311
  3. SABRIL (FOR ORAL SOLUTION) [Suspect]
     Route: 048
     Dates: start: 20130314
  4. PHENOBARBITAL [Concomitant]
     Indication: PRODUCT USED FOR UNKNOWN INDICATION
     Dates: start: 20130305
  5. PHENOBARBITAL [Concomitant]
     Route: 048
     Dates: start: 20130314, end: 20130317
  6. PHENOBARBITAL [Concomitant]
     Route: 048

REACTIONS (1)
  - Death [Fatal]
